FAERS Safety Report 25722884 (Version 2)
Quarter: 2025Q3

REPORT INFORMATION
  Report Type: Spontaneous
  Country: US (occurrence: US)
  Receive Date: 20250825
  Receipt Date: 20250826
  Transmission Date: 20251021
  Serious: Yes (Hospitalization)
  Sender: STRIDES
  Company Number: US-STRIDES ARCOLAB LIMITED-2025SP009671

PATIENT
  Age: 43 Year
  Sex: Male

DRUGS (5)
  1. LEVETIRACETAM [Suspect]
     Active Substance: LEVETIRACETAM
     Indication: Myoclonus
     Route: 065
  2. CLONAZEPAM [Suspect]
     Active Substance: CLONAZEPAM
     Indication: Myoclonus
     Route: 065
  3. FENTANYL [Concomitant]
     Active Substance: FENTANYL
     Indication: Sedative therapy
     Route: 065
  4. MIDAZOLAM [Concomitant]
     Active Substance: MIDAZOLAM
     Indication: Sedative therapy
     Route: 065
  5. PROPOFOL [Concomitant]
     Active Substance: PROPOFOL
     Indication: Sedative therapy
     Route: 065

REACTIONS (1)
  - Drug ineffective [Unknown]
